FAERS Safety Report 20074106 (Version 2)
Quarter: 2021Q4

REPORT INFORMATION
  Report Type: Other
  Country: CN (occurrence: CN)
  Receive Date: 20211116
  Receipt Date: 20211117
  Transmission Date: 20220303
  Serious: Yes (Other)
  Sender: FDA-Public Use
  Company Number: CN-BoehringerIngelheim-2021-BI-136291

PATIENT

DRUGS (2)
  1. ALTEPLASE [Suspect]
     Active Substance: ALTEPLASE
     Indication: Cerebral infarction
     Dosage: 0.9 MG/KG AND A MAXIMUM DOSE OF 77 MG. FOR THE FIRST TIME, 10% OF THE TOTAL DOSE WAS INJECTED INTRAV
     Route: 042
  2. ALTEPLASE [Suspect]
     Active Substance: ALTEPLASE
     Dosage: REMAINING DOSE WAS TREATED BY CONTINUOUS INTRAVENOUS DRIP WITHIN 1 H
     Route: 042

REACTIONS (2)
  - Cerebral haemorrhage [Unknown]
  - Off label use [Unknown]
